FAERS Safety Report 18572015 (Version 1)
Quarter: 2020Q4

REPORT INFORMATION
  Report Type: Spontaneous
  Country: RU (occurrence: RU)
  Receive Date: 20201202
  Receipt Date: 20201202
  Transmission Date: 20210114
  Serious: Yes (Hospitalization)
  Sender: FDA-Public Use
  Company Number: RU-FOUNDATIONCONSUMERHC-2020-RU-000038

PATIENT
  Age: 21 Year
  Sex: 0

DRUGS (1)
  1. LEVONORGESTREL 0.75 MG (UNSPECIFIED) [Suspect]
     Active Substance: LEVONORGESTREL
     Indication: CONTRACEPTION
     Dosage: (2 DOSAGE FORMS,1 IN 0.5 D)
     Route: 048
     Dates: start: 20030408, end: 20030408

REACTIONS (1)
  - Uterine haemorrhage [Recovered/Resolved]

NARRATIVE: CASE EVENT DATE: 20030409
